FAERS Safety Report 11976334 (Version 2)
Quarter: 2016Q1

REPORT INFORMATION
  Report Type: Spontaneous
  Country: FR (occurrence: FR)
  Receive Date: 20160129
  Receipt Date: 20160205
  Transmission Date: 20160526
  Serious: Yes (Other)
  Sender: FDA-Public Use
  Company Number: FR-ROCHE-1701442

PATIENT
  Age: 53 Year
  Sex: Female

DRUGS (4)
  1. KADCYLA [Suspect]
     Active Substance: ADO-TRASTUZUMAB EMTANSINE
     Dosage: DOSE REDUCED
     Route: 041
     Dates: start: 20150922
  2. KADCYLA [Suspect]
     Active Substance: ADO-TRASTUZUMAB EMTANSINE
     Dosage: DOSE REDUCED
     Route: 041
     Dates: start: 20151003, end: 20151124
  3. LOXEN (FRANCE) [Concomitant]
     Active Substance: NICARDIPINE HYDROCHLORIDE
  4. KADCYLA [Suspect]
     Active Substance: ADO-TRASTUZUMAB EMTANSINE
     Indication: BREAST CANCER METASTATIC
     Dosage: INJECTABLE SOLUTION
     Route: 041
     Dates: start: 20150206

REACTIONS (3)
  - Cholestasis [Not Recovered/Not Resolved]
  - Transaminases increased [Not Recovered/Not Resolved]
  - Gamma-glutamyltransferase increased [Not Recovered/Not Resolved]

NARRATIVE: CASE EVENT DATE: 20150227
